FAERS Safety Report 26129944 (Version 1)
Quarter: 2025Q4

REPORT INFORMATION
  Report Type: Report from Study
  Country: US (occurrence: US)
  Receive Date: 20251208
  Receipt Date: 20251208
  Transmission Date: 20260118
  Serious: Yes (Hospitalization)
  Sender: GILEAD
  Company Number: US-GILEAD-2025-0739359

PATIENT
  Age: 25 Year
  Sex: Female

DRUGS (3)
  1. AZTREONAM LYSINE [Suspect]
     Active Substance: AZTREONAM LYSINE
     Indication: Cystic fibrosis
     Dosage: INHALE 1 VIAL VIA NEBULIZER THREE TIMES DAILY FOR 28 DAYS ON AND 28 DAYS OFF
     Route: 055
     Dates: start: 20230414
  2. AZTREONAM LYSINE [Suspect]
     Active Substance: AZTREONAM LYSINE
     Indication: Cystic fibrosis lung
  3. FASENRA [Suspect]
     Active Substance: BENRALIZUMAB
     Indication: Asthma
     Dosage: 30 MG, Q4WK, INJECT 1 PEN UNDER THE SKIN FOR FIRST 3 DOSE
     Route: 058

REACTIONS (9)
  - Viral infection [Unknown]
  - Cystic fibrosis respiratory infection suppression [Unknown]
  - Sleep disorder [Unknown]
  - Loss of personal independence in daily activities [Unknown]
  - Respiratory symptom [Unknown]
  - Dyspnoea [Unknown]
  - Productive cough [Unknown]
  - Social problem [Unknown]
  - Increased viscosity of bronchial secretion [Unknown]
